FAERS Safety Report 23476674 (Version 1)
Quarter: 2024Q1

REPORT INFORMATION
  Report Type: Report from Study
  Country: US (occurrence: US)
  Receive Date: 20240204
  Receipt Date: 20240204
  Transmission Date: 20240410
  Serious: No
  Sender: FDA-Public Use
  Company Number: US-EXELIXIS-CABO-23063966

PATIENT
  Sex: Male

DRUGS (1)
  1. CABOMETYX [Suspect]
     Active Substance: CABOZANTINIB S-MALATE
     Indication: Renal cancer
     Dosage: 40 MG, QD
     Route: 048

REACTIONS (11)
  - Joint swelling [Unknown]
  - Skin fissures [Unknown]
  - Erythema [Unknown]
  - Blister [Unknown]
  - Peripheral swelling [Unknown]
  - Pruritus [Unknown]
  - Fatigue [Not Recovered/Not Resolved]
  - Stomatitis [Unknown]
  - Dry skin [Unknown]
  - White blood cell count decreased [Unknown]
  - Taste disorder [Unknown]
